FAERS Safety Report 5992346-0 (Version None)
Quarter: 2008Q4

REPORT INFORMATION
  Report Type: 
  Country: None (occurrence: None)
  Receive Date: 20081202
  Receipt Date: 20071015
  Transmission Date: 20090506
  Serious: Yes (Disabling)
  Sender: FDA-Public Use
  Company Number: WAES 0705USA03546

PATIENT
  Age: 72 Year
  Sex: Female
  Weight: 43.0917 kg

DRUGS (15)
  1. FOSAMAX [Suspect]
     Indication: OSTEOPOROSIS
     Dosage: 35 MG/PO
     Route: 048
     Dates: start: 20010622, end: 20020101
  2. FOSAMAX [Suspect]
     Indication: OSTEOPENIA
     Dosage: 70 MG/PO ; 70 MG;PO
     Route: 048
     Dates: start: 20030313, end: 20040428
  3. FOSAMAX [Suspect]
     Indication: OSTEOPENIA
     Dosage: 70 MG/PO ; 70 MG;PO
     Route: 048
     Dates: start: 20020101
  4. FOSAMAX [Suspect]
     Indication: OSTEOPENIA
     Dosage: 5 MG/DAILY/PO
     Route: 048
  5. ACTONEL [Suspect]
     Indication: OSTEOPOROSIS
     Dosage: 35 MG
     Dates: start: 20040101, end: 20060101
  6. DARVOCET-N 100 [Concomitant]
  7. PLAQUENIL [Concomitant]
  8. PREVACID [Concomitant]
  9. ULTRAM [Concomitant]
  10. VIOXX [Concomitant]
  11. CALCIUM (UNSPECIFIED) [Concomitant]
  12. FOLIC ACID [Concomitant]
  13. METHOTREXATE [Concomitant]
  14. PREDNISONE TAB [Concomitant]
  15. VITAMIN D (UNSPECIFIED) [Concomitant]

REACTIONS (16)
  - ABDOMINAL BRUIT [None]
  - ABDOMINAL DISCOMFORT [None]
  - ANOREXIA [None]
  - BALANCE DISORDER [None]
  - CLAUSTROPHOBIA [None]
  - CONSTIPATION [None]
  - COUGH [None]
  - DIZZINESS [None]
  - FATIGUE [None]
  - HEARING IMPAIRED [None]
  - INSOMNIA [None]
  - IRON DEFICIENCY ANAEMIA [None]
  - NAUSEA [None]
  - OSTEOMYELITIS [None]
  - OSTEONECROSIS [None]
  - WEIGHT DECREASED [None]
